FAERS Safety Report 12438295 (Version 3)
Quarter: 2016Q3

REPORT INFORMATION
  Report Type: Spontaneous
  Country: US (occurrence: US)
  Receive Date: 20160606
  Receipt Date: 20160705
  Transmission Date: 20161109
  Serious: Yes (Other)
  Sender: FDA-Public Use
  Company Number: US-GLAXOSMITHKLINE-US2016079449

PATIENT
  Age: 4 Year
  Sex: Male

DRUGS (5)
  1. ALBUTEROL. [Suspect]
     Active Substance: ALBUTEROL
     Indication: DYSPNOEA
  2. QVAR [Concomitant]
     Active Substance: BECLOMETHASONE DIPROPIONATE
  3. VENTOLIN HFA [Suspect]
     Active Substance: ALBUTEROL SULFATE
     Indication: DYSPNOEA
  4. ZYRTEC [Concomitant]
     Active Substance: CETIRIZINE HYDROCHLORIDE
  5. VENTOLIN HFA [Suspect]
     Active Substance: ALBUTEROL SULFATE
     Indication: ASTHMA
     Dosage: 2 PUFF(S), PRN
     Route: 055
     Dates: start: 2015

REACTIONS (14)
  - Vomiting [Recovered/Resolved]
  - Pyrexia [Recovering/Resolving]
  - Drug dose omission [Unknown]
  - Nasopharyngitis [Recovered/Resolved]
  - Rash [Not Recovered/Not Resolved]
  - Bronchiolitis [Unknown]
  - Drug administered to patient of inappropriate age [Unknown]
  - Pneumonia [Unknown]
  - Rash erythematous [Not Recovered/Not Resolved]
  - Viral infection [Unknown]
  - Device use error [Unknown]
  - Product quality issue [Unknown]
  - Cough [Not Recovered/Not Resolved]
  - Atypical pneumonia [Recovered/Resolved]

NARRATIVE: CASE EVENT DATE: 201601
